FAERS Safety Report 17489796 (Version 1)
Quarter: 2020Q1

REPORT INFORMATION
  Report Type: Spontaneous
  Country: US (occurrence: US)
  Receive Date: 20200303
  Receipt Date: 20200303
  Transmission Date: 20200409
  Serious: No
  Sender: FDA-Public Use
  Company Number: US-AKORN PHARMACEUTICALS-2019AKN01199

PATIENT
  Sex: Female
  Weight: 68.03 kg

DRUGS (4)
  1. MYORISAN [Suspect]
     Active Substance: ISOTRETINOIN
     Dosage: INCREASED DOSE BY 10 MG PER DAY (70 MG PER DAY)
  2. MYORISAN [Suspect]
     Active Substance: ISOTRETINOIN
     Indication: ACNE
     Dosage: 30 MG, 2X/DAY
  3. MYORISAN [Suspect]
     Active Substance: ISOTRETINOIN
     Indication: ACNE
     Dosage: 40 MG, 1X/DAY
     Route: 048
  4. MYORISAN [Suspect]
     Active Substance: ISOTRETINOIN
     Dosage: INCREASED DOSE BY 10 MG DAILY (70 MG/DAY)

REACTIONS (6)
  - Lip dry [Not Recovered/Not Resolved]
  - Off label use [Recovered/Resolved]
  - Ocular hyperaemia [Unknown]
  - Liver function test increased [Recovered/Resolved]
  - Eye irritation [Unknown]
  - Dry eye [Not Recovered/Not Resolved]
